FAERS Safety Report 15812482 (Version 1)
Quarter: 2019Q1

REPORT INFORMATION
  Report Type: Spontaneous
  Country: US (occurrence: US)
  Receive Date: 20190111
  Receipt Date: 20190111
  Transmission Date: 20190417
  Serious: No
  Sender: FDA-Public Use
  Company Number: US-ALLERGAN-1811426US

PATIENT

DRUGS (3)
  1. DALVANCE [Suspect]
     Active Substance: DALBAVANCIN
     Indication: OSTEOMYELITIS
     Dosage: UNK
     Route: 065
  2. DALVANCE [Suspect]
     Active Substance: DALBAVANCIN
     Indication: BACTERAEMIA
  3. DALVANCE [Suspect]
     Active Substance: DALBAVANCIN
     Indication: ENDOCARDITIS

REACTIONS (1)
  - Off label use [Unknown]
